FAERS Safety Report 9029718 (Version 2)
Quarter: 2013Q2

REPORT INFORMATION
  Report Type: Spontaneous
  Country: US (occurrence: US)
  Receive Date: 20130124
  Receipt Date: 20130522
  Transmission Date: 20140414
  Serious: No
  Sender: FDA-Public Use
  Company Number: US-009507513-1301USA010614

PATIENT
  Sex: Female
  Weight: 65.22 kg

DRUGS (2)
  1. IMPLANON [Suspect]
     Dosage: UNK
     Dates: start: 201211
  2. FLAGYL (METRONIDAZOLE BENZOATE) [Concomitant]
     Indication: VAGINAL INFECTION

REACTIONS (4)
  - Headache [Unknown]
  - Affective disorder [Unknown]
  - Medical device complication [Unknown]
  - Device difficult to use [Unknown]
